FAERS Safety Report 20988147 (Version 4)
Quarter: 2022Q4

REPORT INFORMATION
  Report Type: Spontaneous
  Country: US (occurrence: US)
  Receive Date: 20220621
  Receipt Date: 20221201
  Transmission Date: 20230112
  Serious: Yes (Hospitalization)
  Sender: FDA-Public Use
  Company Number: US-BRISTOL-MYERS SQUIBB COMPANY-2022-061380

PATIENT
  Age: 89 Year
  Sex: Male
  Weight: 74.8 kg

DRUGS (2)
  1. POMALYST [Suspect]
     Active Substance: POMALIDOMIDE
     Indication: Plasma cell myeloma
     Route: 048
     Dates: start: 20220501
  2. POMALYST [Suspect]
     Active Substance: POMALIDOMIDE
     Dosage: ONCE DAILY
     Route: 048
     Dates: start: 20220601

REACTIONS (4)
  - Vomiting [Unknown]
  - Chills [Unknown]
  - Erythema [Recovered/Resolved]
  - Headache [Unknown]
